FAERS Safety Report 6313927-0 (Version None)
Quarter: 2009Q3

REPORT INFORMATION
  Report Type: 
  Country: None (occurrence: None)
  Receive Date: 20090818
  Receipt Date: 20090805
  Transmission Date: 20100115
  Serious: Yes (Hospitalization, Other)
  Sender: FDA-Public Use
  Company Number: PHHY2009SE32702

PATIENT
  Sex: Male

DRUGS (14)
  1. CERTICAN [Suspect]
     Indication: LUNG TRANSPLANT
     Dosage: UNK
     Dates: start: 20090225, end: 20090507
  2. VFEND [Interacting]
     Indication: ASPERGILLOSIS
     Dosage: 400 MG DAILY
     Dates: start: 20090414, end: 20090510
  3. SANDIMMUNE [Concomitant]
     Dosage: UNK
  4. CELLCEPT [Concomitant]
     Dosage: UNK
  5. PREDNISOLONE [Concomitant]
     Dosage: UNK
  6. FOSAMAX [Concomitant]
     Dosage: UNK
  7. PAMOL [Concomitant]
     Dosage: UNK
  8. OMEPRAZOL [Concomitant]
  9. SIMVASTATIN [Concomitant]
  10. BACTRIM [Concomitant]
  11. EMCONCOR [Concomitant]
     Dosage: UNK
  12. CALCICHEW-D3 [Concomitant]
  13. TRADOLAN [Concomitant]
     Dosage: UNK
  14. FURIX RETARD [Concomitant]
     Dosage: UNK

REACTIONS (11)
  - ALANINE AMINOTRANSFERASE INCREASED [None]
  - ASPARTATE AMINOTRANSFERASE INCREASED [None]
  - ASPERGILLOSIS [None]
  - BLOOD CREATINE PHOSPHOKINASE INCREASED [None]
  - BLOOD CREATININE INCREASED [None]
  - CHROMATURIA [None]
  - COUGH [None]
  - DRUG INTERACTION [None]
  - FATIGUE [None]
  - IMMUNOSUPPRESSANT DRUG LEVEL INCREASED [None]
  - INCREASED UPPER AIRWAY SECRETION [None]
